FAERS Safety Report 15133774 (Version 1)
Quarter: 2018Q3

REPORT INFORMATION
  Report Type: Spontaneous
  Country: DE (occurrence: DE)
  Receive Date: 20180712
  Receipt Date: 20180712
  Transmission Date: 20181010
  Serious: Yes (Other)
  Sender: FDA-Public Use
  Company Number: DE-AUROBINDO-AUR-APL-2018-035296

PATIENT
  Sex: Female
  Weight: 130 kg

DRUGS (3)
  1. TORASEMID [Concomitant]
     Active Substance: TORSEMIDE
     Indication: THROMBOSIS
     Dosage: UNK
     Route: 065
     Dates: start: 201509
  2. L?THYROXIN                         /00068001/ [Concomitant]
     Active Substance: LEVOTHYROXINE
     Indication: THROMBOSIS
     Dosage: UNK
     Route: 065
     Dates: start: 200703
  3. LEVONORGESTREL+ETHINYLESTRADIOL [Suspect]
     Active Substance: ETHINYL ESTRADIOL\LEVONORGESTREL
     Indication: PRODUCT USED FOR UNKNOWN INDICATION
     Dosage: UNK
     Route: 065

REACTIONS (1)
  - Deep vein thrombosis [Unknown]

NARRATIVE: CASE EVENT DATE: 20180311
